FAERS Safety Report 9322833 (Version 2)
Quarter: 2013Q3

REPORT INFORMATION
  Report Type: Spontaneous
  Country: IL (occurrence: IL)
  Receive Date: 20130601
  Receipt Date: 20130705
  Transmission Date: 20140515
  Serious: Yes (Death)
  Sender: FDA-Public Use
  Company Number: IL-ROCHE-1229296

PATIENT
  Age: 60 Year
  Sex: Female

DRUGS (4)
  1. TRASTUZUMAB [Suspect]
     Indication: BREAST CANCER
     Route: 065
  2. TAXOTERE [Suspect]
     Indication: BREAST CANCER
     Route: 065
  3. CARBOPLATIN [Suspect]
     Indication: BREAST CANCER
     Route: 065
  4. ASPIRIN [Concomitant]
     Route: 065

REACTIONS (3)
  - Intestinal ischaemia [Fatal]
  - Febrile neutropenia [Fatal]
  - Vascular occlusion [Fatal]
